FAERS Safety Report 23631337 (Version 1)
Quarter: 2024Q1

REPORT INFORMATION
  Report Type: Spontaneous
  Country: US (occurrence: None)
  Receive Date: 20240313
  Receipt Date: 20240313
  Transmission Date: 20240410
  Serious: Yes (Other)
  Sender: FDA-Public Use
  Company Number: None

PATIENT
  Age: 36 Year
  Sex: Male

DRUGS (3)
  1. HUMIRA [Suspect]
     Active Substance: ADALIMUMAB
     Indication: Psoriasis
     Dosage: FREQUENCY : AS DIRECTED;?
     Route: 058
     Dates: start: 20230214
  2. IBUPROFEN [Concomitant]
  3. RETALIN LA [Concomitant]

REACTIONS (3)
  - Ligament sprain [None]
  - Rib fracture [None]
  - Pain [None]

NARRATIVE: CASE EVENT DATE: 20240301
